FAERS Safety Report 4404713-7 (Version None)
Quarter: 2004Q3

REPORT INFORMATION
  Report Type: 
  Country: None (occurrence: None)
  Receive Date: 20040722
  Receipt Date: 20040113
  Transmission Date: 20050211
  Serious: Yes (Death, Hospitalization)
  Sender: FDA-Public Use
  Company Number: FRPFM-C-20040006

PATIENT
  Age: 69 Year
  Sex: Female

DRUGS (16)
  1. NAVELBINE [Suspect]
     Dosage: 60MGM2 CYCLIC
     Route: 048
     Dates: start: 20031117, end: 20031208
  2. NAVELBINE [Suspect]
     Dosage: 20MGM2 CYCLIC
     Route: 042
     Dates: start: 20031103, end: 20031222
  3. TAXOTERE [Suspect]
     Dosage: 60MGM2 CYCLIC
     Route: 042
     Dates: start: 20031103, end: 20031222
  4. ANAFRANIL [Concomitant]
  5. TRANKIMAZIN [Concomitant]
  6. SOMAZINA [Concomitant]
  7. IDAPTAN [Concomitant]
  8. RENITEC [Concomitant]
  9. ZARATOR [Concomitant]
  10. DIAMICRON [Concomitant]
  11. DIASTABOL [Concomitant]
  12. NORMOVITE ANTIANEMICO [Concomitant]
  13. SEROXAT [Concomitant]
  14. ZINNAT [Concomitant]
  15. BAYCIP [Concomitant]
  16. CEPHALOSPORIN [Concomitant]

REACTIONS (8)
  - DEATH [None]
  - DEPRESSED LEVEL OF CONSCIOUSNESS [None]
  - ENCEPHALOPATHY [None]
  - FATIGUE [None]
  - FEBRILE NEUTROPENIA [None]
  - LEUKOPENIA [None]
  - PULMONARY EMBOLISM [None]
  - PYREXIA [None]
